FAERS Safety Report 21646710 (Version 1)
Quarter: 2022Q4

REPORT INFORMATION
  Report Type: Spontaneous
  Country: CA (occurrence: CA)
  Receive Date: 20221127
  Receipt Date: 20221127
  Transmission Date: 20230113
  Serious: Yes (Death)
  Sender: FDA-Public Use
  Company Number: CA-TEVA-2022-CA-2828202

PATIENT
  Age: 98 Year
  Sex: Female

DRUGS (3)
  1. DILTIAZEM [Suspect]
     Active Substance: DILTIAZEM
     Indication: Product used for unknown indication
     Route: 065
  2. METOPROLOL [Suspect]
     Active Substance: METOPROLOL
     Indication: Product used for unknown indication
     Route: 065
  3. OLANZAPINE [Suspect]
     Active Substance: OLANZAPINE
     Indication: Product used for unknown indication
     Route: 065

REACTIONS (16)
  - Acute coronary syndrome [Fatal]
  - Acute pulmonary oedema [Fatal]
  - Agitation [Fatal]
  - Bradycardia [Fatal]
  - Cardiac failure [Fatal]
  - Chest pain [Fatal]
  - Condition aggravated [Fatal]
  - Dyspnoea [Fatal]
  - Hypoventilation [Fatal]
  - Myocardial hypoxia [Fatal]
  - Somnolence [Fatal]
  - Oxygen saturation decreased [Fatal]
  - Heart rate decreased [Fatal]
  - Product communication issue [Fatal]
  - Product monitoring error [Fatal]
  - Wrong patient received product [Fatal]
